FAERS Safety Report 15224677 (Version 2)
Quarter: 2018Q3

REPORT INFORMATION
  Report Type: Spontaneous
  Country: NL (occurrence: NL)
  Receive Date: 20180731
  Receipt Date: 20180906
  Transmission Date: 20181010
  Serious: Yes (Other)
  Sender: FDA-Public Use
  Company Number: NL-TAKEDA-2018TUS023300

PATIENT
  Age: 53 Year
  Sex: Female

DRUGS (2)
  1. ENTYVIO [Suspect]
     Active Substance: VEDOLIZUMAB
     Indication: COLITIS
     Dosage: 300 MG, UNK
     Route: 042
     Dates: start: 201710
  2. MESALAZIN [Concomitant]
     Active Substance: MESALAMINE
     Indication: COLITIS
     Dosage: UNK

REACTIONS (1)
  - Breast cancer [Unknown]
